FAERS Safety Report 23575311 (Version 2)
Quarter: 2024Q1

REPORT INFORMATION
  Report Type: Spontaneous
  Country: US (occurrence: US)
  Receive Date: 20240228
  Receipt Date: 20240229
  Transmission Date: 20240410
  Serious: Yes (Other)
  Sender: FDA-Public Use
  Company Number: US-BRISTOL-MYERS SQUIBB COMPANY-2024-029380

PATIENT
  Age: 70 Year
  Sex: Male
  Weight: 98.88 kg

DRUGS (1)
  1. POMALYST [Suspect]
     Active Substance: POMALIDOMIDE
     Indication: Plasma cell myeloma
     Dosage: 2WEEKS ON AND 2WEEKS OFF
     Route: 048

REACTIONS (2)
  - Plasma cell myeloma [Unknown]
  - Off label use [Unknown]
